FAERS Safety Report 5899387-2 (Version None)
Quarter: 2008Q3

REPORT INFORMATION
  Report Type: 
  Country: None (occurrence: None)
  Receive Date: 20080924
  Receipt Date: 20080910
  Transmission Date: 20090109
  Serious: No
  Sender: FDA-Public Use
  Company Number: 8028417

PATIENT
  Sex: Male

DRUGS (4)
  1. KEPPRA [Suspect]
     Dosage: 1500 MG 2/D PO
     Route: 048
  2. TEGRETOL [Concomitant]
  3. HYOSCYAMINE [Concomitant]
  4. ZANAFLEX [Concomitant]

REACTIONS (5)
  - DROOLING [None]
  - INFLUENZA [None]
  - INSOMNIA [None]
  - MEDICATION ERROR [None]
  - SALIVARY HYPERSECRETION [None]
